FAERS Safety Report 17255798 (Version 5)
Quarter: 2024Q3

REPORT INFORMATION
  Report Type: Spontaneous
  Country: US (occurrence: US)
  Receive Date: 20200110
  Receipt Date: 20240824
  Transmission Date: 20241016
  Serious: Yes (Death, Hospitalization, Other)
  Sender: AMGEN
  Company Number: US-AMGEN-USASP2020002245

PATIENT

DRUGS (9)
  1. FILGRASTIM [Suspect]
     Active Substance: FILGRASTIM
     Indication: Product used for unknown indication
     Dosage: 5 MILLIGRAM/KILOGRAM, QD
     Route: 065
  2. PEGFILGRASTIM [Suspect]
     Active Substance: PEGFILGRASTIM
     Indication: Product used for unknown indication
     Dosage: 6 MILLIGRAM
     Route: 065
  3. VENETOCLAX [Suspect]
     Active Substance: VENETOCLAX
     Indication: Acute myeloid leukaemia
     Dosage: 200 MILLIGRAM
     Route: 048
  4. VENETOCLAX [Suspect]
     Active Substance: VENETOCLAX
     Dosage: 400 MILLIGRAM
     Route: 048
  5. FLUDARABINE [Suspect]
     Active Substance: FLUDARABINE PHOSPHATE
     Indication: Acute myeloid leukaemia
     Dosage: 30 MILLIGRAM/SQ. METER
     Route: 042
  6. CYTARABINE [Suspect]
     Active Substance: CYTARABINE
     Indication: Acute myeloid leukaemia
     Dosage: 2 GRAM PER SQUARE METRE
     Route: 042
  7. CYTARABINE [Suspect]
     Active Substance: CYTARABINE
     Dosage: 1.5 GRAM PER SQUARE METRE
     Route: 042
  8. IDARUBICIN [Suspect]
     Active Substance: IDARUBICIN
     Indication: Acute myeloid leukaemia
     Dosage: 6 MILLIGRAM/SQ. METER
     Route: 048
  9. IDARUBICIN [Suspect]
     Active Substance: IDARUBICIN
     Dosage: 8 MILLIGRAM/SQ. METER
     Route: 048

REACTIONS (49)
  - Idiopathic pneumonia syndrome [Fatal]
  - Respiratory failure [Fatal]
  - Acute myeloid leukaemia [Fatal]
  - Pneumonia fungal [Fatal]
  - Appendicitis [Unknown]
  - Intestinal perforation [Unknown]
  - Infusion site reaction [Unknown]
  - Sepsis [Unknown]
  - Haemorrhage intracranial [Unknown]
  - Pneumonia [Unknown]
  - Gastrointestinal haemorrhage [Unknown]
  - Colitis [Unknown]
  - Febrile neutropenia [Unknown]
  - Cytopenia [Unknown]
  - Myelosuppression [Unknown]
  - Proctalgia [Unknown]
  - Embolism venous [Unknown]
  - Hyperglycaemia [Unknown]
  - Gastroenteritis [Unknown]
  - Liver function test increased [Unknown]
  - Tooth infection [Unknown]
  - Abdominal pain [Unknown]
  - Sinusitis [Unknown]
  - Oral disorder [Unknown]
  - Skin laceration [Unknown]
  - Oesophagitis [Unknown]
  - Acute kidney injury [Unknown]
  - Skin infection [Unknown]
  - Cardiac disorder [Unknown]
  - Periorbital cellulitis [Unknown]
  - Conjunctivitis [Unknown]
  - Bacteraemia [Unknown]
  - Mucosal inflammation [Unknown]
  - Hypotension [Unknown]
  - Acute myeloid leukaemia recurrent [Unknown]
  - Hypertension [Unknown]
  - Dizziness [Unknown]
  - Urinary tract infection [Unknown]
  - Upper respiratory tract infection [Unknown]
  - Leukocytosis [Unknown]
  - Epistaxis [Unknown]
  - Amylase increased [Unknown]
  - Non-cardiac chest pain [Unknown]
  - Drug ineffective [Unknown]
  - Nausea [Unknown]
  - Headache [Unknown]
  - Pyrexia [Unknown]
  - Cough [Unknown]
  - Treatment failure [Unknown]
